FAERS Safety Report 21700547 (Version 2)
Quarter: 2022Q4

REPORT INFORMATION
  Report Type: Spontaneous
  Country: US (occurrence: US)
  Receive Date: 20221208
  Receipt Date: 20221219
  Transmission Date: 20230113
  Serious: Yes (Hospitalization)
  Sender: FDA-Public Use
  Company Number: US-TEVA-2022-US-2833334

PATIENT
  Age: 8 Year
  Sex: Male

DRUGS (2)
  1. FENTANYL [Suspect]
     Active Substance: FENTANYL
     Indication: Product used for unknown indication
     Route: 065
  2. XYLAZINE [Suspect]
     Active Substance: XYLAZINE
     Indication: Product used for unknown indication
     Dosage: ADULTERATED WITH FENTANYL
     Route: 065

REACTIONS (7)
  - Loss of consciousness [Recovering/Resolving]
  - Mental status changes [Recovering/Resolving]
  - Respiratory depression [Recovering/Resolving]
  - Respiratory acidosis [Recovering/Resolving]
  - Toxicity to various agents [Recovering/Resolving]
  - Adulterated product [Unknown]
  - Overdose [Unknown]
